FAERS Safety Report 15488753 (Version 1)
Quarter: 2018Q4

REPORT INFORMATION
  Report Type: Other
  Country: US (occurrence: US)
  Receive Date: 20181011
  Receipt Date: 20181011
  Transmission Date: 20190205
  Serious: Yes (Life-Threatening, Hospitalization)
  Sender: FDA-Public Use
  Company Number: US-NOSTRUM LABORATORIES, INC.-2055931

PATIENT
  Age: 74 Year
  Sex: Female

DRUGS (1)
  1. NITROFURANTOIN. [Suspect]
     Active Substance: NITROFURANTOIN
     Indication: URINARY TRACT INFECTION
     Route: 048

REACTIONS (4)
  - Thrombocytopenia [Recovered/Resolved]
  - Systemic inflammatory response syndrome [Recovered/Resolved]
  - Drug-induced liver injury [Recovered/Resolved]
  - Bundle branch block left [Recovered/Resolved]
